FAERS Safety Report 7599434 (Version 5)
Quarter: 2020Q4

REPORT INFORMATION
  Report Type: Spontaneous
  Country: CA (occurrence: CA)
  Receive Date: 20100921
  Receipt Date: 20201111
  Transmission Date: 20210114
  Serious: Yes (Death, Hospitalization, Other)
  Sender: FDA-Public Use
  Company Number: CA-JNJFOC-20100903841

PATIENT
  Age: 16 Year
  Sex: Female

DRUGS (40)
  1. REMICADE [Suspect]
     Active Substance: INFLIXIMAB
     Indication: CROHN^S DISEASE
     Route: 042
     Dates: start: 20100828
  2. ACETAZOLAMIDE. [Concomitant]
     Active Substance: ACETAZOLAMIDE
     Indication: PRODUCT USED FOR UNKNOWN INDICATION
     Route: 065
  3. HYDROXYCHLOROQUINE [Concomitant]
     Active Substance: HYDROXYCHLOROQUINE
     Indication: PRODUCT USED FOR UNKNOWN INDICATION
     Route: 065
  4. REMICADE [Suspect]
     Active Substance: INFLIXIMAB
     Indication: STILL^S DISEASE
  5. METHOTREXATE. [Suspect]
     Active Substance: METHOTREXATE
     Indication: STILL^S DISEASE
     Route: 030
  6. THALOMID [Suspect]
     Active Substance: THALIDOMIDE
     Indication: STILL^S DISEASE
     Route: 048
  7. ANAKINRA [Suspect]
     Active Substance: ANAKINRA
     Indication: JUVENILE IDIOPATHIC ARTHRITIS
     Route: 058
  8. TACROLIMUS. [Suspect]
     Active Substance: TACROLIMUS
     Indication: STILL^S DISEASE
  9. THALIDOMIDE [Suspect]
     Active Substance: THALIDOMIDE
     Indication: JUVENILE IDIOPATHIC ARTHRITIS
     Route: 048
  10. THALIDOMIDE [Suspect]
     Active Substance: THALIDOMIDE
     Indication: STILL^S DISEASE
  11. KINERET [Suspect]
     Active Substance: ANAKINRA
     Indication: PRODUCT USED FOR UNKNOWN INDICATION
     Route: 058
  12. CALCIUM [Concomitant]
     Active Substance: CALCIUM
     Indication: PRODUCT USED FOR UNKNOWN INDICATION
     Route: 065
  13. VITAMIN D [Concomitant]
     Active Substance: VITAMIN D NOS
  14. SOLU-MEDROL [Concomitant]
     Active Substance: METHYLPREDNISOLONE SODIUM SUCCINATE
     Route: 042
  15. LEFLUNOMIDE. [Concomitant]
     Active Substance: LEFLUNOMIDE
     Indication: PRODUCT USED FOR UNKNOWN INDICATION
     Route: 065
  16. TACROLIMUS. [Suspect]
     Active Substance: TACROLIMUS
     Indication: STILL^S DISEASE
     Route: 065
  17. INFLIXIMAB [Suspect]
     Active Substance: INFLIXIMAB
     Indication: JUVENILE IDIOPATHIC ARTHRITIS
     Route: 042
  18. ERELZI [Suspect]
     Active Substance: ETANERCEPT-SZZS
     Indication: STILL^S DISEASE
     Dosage: 25 MG IN 0.5 ML SOLUTION
     Route: 058
  19. PREVACID [Concomitant]
     Active Substance: LANSOPRAZOLE
     Route: 048
  20. AZATHIOPRINE. [Concomitant]
     Active Substance: AZATHIOPRINE
     Indication: PRODUCT USED FOR UNKNOWN INDICATION
     Route: 065
  21. IRON [Concomitant]
     Active Substance: IRON
     Indication: PRODUCT USED FOR UNKNOWN INDICATION
     Route: 065
  22. ETOPOSIDE. [Suspect]
     Active Substance: ETOPOSIDE
     Indication: JUVENILE IDIOPATHIC ARTHRITIS
  23. ALENDRONATE SODIUM. [Concomitant]
     Active Substance: ALENDRONATE SODIUM
     Indication: PRODUCT USED FOR UNKNOWN INDICATION
     Route: 065
  24. HYDROXYCHLOROQUINE SULPHATE [Concomitant]
     Active Substance: HYDROXYCHLOROQUINE
  25. REMICADE [Suspect]
     Active Substance: INFLIXIMAB
     Indication: JUVENILE IDIOPATHIC ARTHRITIS
  26. ANAKINRA [Suspect]
     Active Substance: ANAKINRA
     Indication: STILL^S DISEASE
     Route: 065
  27. ENBREL [Suspect]
     Active Substance: ETANERCEPT
     Route: 058
  28. ETOPOSIDE. [Suspect]
     Active Substance: ETOPOSIDE
     Indication: STILL^S DISEASE
     Route: 065
  29. INFLIXIMAB [Suspect]
     Active Substance: INFLIXIMAB
     Indication: STILL^S DISEASE
     Route: 065
  30. CYCLOPHOSPHAMIDE. [Concomitant]
     Active Substance: CYCLOPHOSPHAMIDE
     Indication: PRODUCT USED FOR UNKNOWN INDICATION
     Route: 065
  31. ACETAMINOPHEN. [Concomitant]
     Active Substance: ACETAMINOPHEN
  32. CICLOSPORIN [Suspect]
     Active Substance: CYCLOSPORINE
     Route: 065
  33. ENBREL [Suspect]
     Active Substance: ETANERCEPT
     Indication: STILL^S DISEASE
     Route: 058
  34. TACROLIMUS. [Suspect]
     Active Substance: TACROLIMUS
     Indication: JUVENILE IDIOPATHIC ARTHRITIS
  35. THALOMID [Suspect]
     Active Substance: THALIDOMIDE
     Indication: OFF LABEL USE
     Route: 065
  36. ENBREL [Suspect]
     Active Substance: ETANERCEPT
     Indication: PRODUCT USED FOR UNKNOWN INDICATION
  37. PREDNISONE. [Concomitant]
     Active Substance: PREDNISONE
     Indication: PRODUCT USED FOR UNKNOWN INDICATION
     Route: 065
  38. CICLOSPORIN [Suspect]
     Active Substance: CYCLOSPORINE
     Indication: JUVENILE IDIOPATHIC ARTHRITIS
     Route: 048
  39. ENBREL [Suspect]
     Active Substance: ETANERCEPT
     Route: 065
  40. METHOTREXATE. [Suspect]
     Active Substance: METHOTREXATE
     Indication: JUVENILE IDIOPATHIC ARTHRITIS

REACTIONS (13)
  - Complications of bone marrow transplant [Fatal]
  - Off label use [Unknown]
  - Product use in unapproved indication [Unknown]
  - Thrombocytopenia [Fatal]
  - Hepatosplenic T-cell lymphoma [Fatal]
  - Hair follicle tumour benign [Fatal]
  - Pyrexia [Fatal]
  - Myelosuppression [Unknown]
  - Tachycardia [Fatal]
  - Abdominal pain upper [Fatal]
  - Product use issue [Fatal]
  - Splenomegaly [Fatal]
  - Hypotension [Fatal]

NARRATIVE: CASE EVENT DATE: 20100831
